FAERS Safety Report 11690398 (Version 1)
Quarter: 2015Q4

REPORT INFORMATION
  Report Type: Report from Study
  Country: US (occurrence: US)
  Receive Date: 20151102
  Receipt Date: 20151102
  Transmission Date: 20160304
  Serious: Yes (Other)
  Sender: FDA-Public Use
  Company Number: US-AMGEN-USASL2015114079

PATIENT
  Sex: Female

DRUGS (2)
  1. ENBREL [Suspect]
     Active Substance: ETANERCEPT
     Indication: PSORIATIC ARTHROPATHY
  2. ENBREL [Suspect]
     Active Substance: ETANERCEPT
     Indication: PSORIASIS
     Dosage: 50 MG, UNK
     Route: 065
     Dates: start: 2005

REACTIONS (7)
  - Brain injury [Unknown]
  - Spinal osteoarthritis [Unknown]
  - Disability [Unknown]
  - Psoriasis [Unknown]
  - Condition aggravated [Not Recovered/Not Resolved]
  - Arthritis [Unknown]
  - Injury [Unknown]

NARRATIVE: CASE EVENT DATE: 2015
